FAERS Safety Report 6099966-6 (Version None)
Quarter: 2009Q1

REPORT INFORMATION
  Report Type: 
  Country: None (occurrence: None)
  Receive Date: 20090303
  Receipt Date: 20090227
  Transmission Date: 20090719
  Serious: Yes (Hospitalization)
  Sender: FDA-Public Use
  Company Number: PHHO2005US12800

PATIENT
  Sex: Male
  Weight: 92.5 kg

DRUGS (1)
  1. TASIGNA [Suspect]
     Indication: CHRONIC MYELOID LEUKAEMIA
     Dosage: 400 MG, BID
     Route: 048
     Dates: start: 20041224, end: 20050809

REACTIONS (8)
  - ANGINA PECTORIS [None]
  - BLOOD CREATINE PHOSPHOKINASE MB INCREASED [None]
  - CONCOMITANT DISEASE PROGRESSION [None]
  - CORONARY ARTERY STENOSIS [None]
  - ELECTROCARDIOGRAM ST SEGMENT [None]
  - GASTROOESOPHAGEAL REFLUX DISEASE [None]
  - MYOCARDIAL INFARCTION [None]
  - STENT PLACEMENT [None]
